FAERS Safety Report 17317206 (Version 28)
Quarter: 2022Q1

REPORT INFORMATION
  Report Type: Report from Study
  Country: US (occurrence: US)
  Receive Date: 20200124
  Receipt Date: 20220324
  Transmission Date: 20220423
  Serious: Yes (Other)
  Sender: FDA-Public Use
  Company Number: US-SHIRE-US202001903

PATIENT
  Sex: Female
  Weight: 58.957 kg

DRUGS (28)
  1. HUMAN IMMUNOGLOBULIN G [Suspect]
     Active Substance: HUMAN IMMUNOGLOBULIN G
     Indication: Immunodeficiency common variable
     Dosage: 15 GRAM, Q2WEEKS
     Route: 058
     Dates: start: 20181107
  2. HUMAN IMMUNOGLOBULIN G [Suspect]
     Active Substance: HUMAN IMMUNOGLOBULIN G
     Dosage: 16 GRAM, Q2WEEKS
     Route: 058
     Dates: start: 20181115
  3. HYQVIA [Concomitant]
     Active Substance: HUMAN IMMUNOGLOBULIN G\HYALURONIDASE RECOMBINANT HUMAN
     Dosage: UNK
     Route: 065
  4. ACETAMINOPHEN [Concomitant]
     Active Substance: ACETAMINOPHEN
  5. DIPHENHYDRAMINE [Concomitant]
     Active Substance: DIPHENHYDRAMINE
  6. EPINEPHRINE [Concomitant]
     Active Substance: EPINEPHRINE
  7. LIDOCAINE [Concomitant]
     Active Substance: LIDOCAINE
  8. ENALAPRIL MALEATE [Concomitant]
     Active Substance: ENALAPRIL MALEATE
  9. ASPIRIN [Concomitant]
     Active Substance: ASPIRIN
  10. TRELEGY ELLIPTA [Concomitant]
     Active Substance: FLUTICASONE FUROATE\UMECLIDINIUM BROMIDE\VILANTEROL TRIFENATATE
  11. ATROVENT HFA [Concomitant]
     Active Substance: IPRATROPIUM BROMIDE
  12. AZELASTINE [Concomitant]
     Active Substance: AZELASTINE
  13. KEPPRA [Concomitant]
     Active Substance: LEVETIRACETAM
  14. CYANOCOBALAMIN [Concomitant]
     Active Substance: CYANOCOBALAMIN
  15. ORENCIA [Concomitant]
     Active Substance: ABATACEPT
  16. SINGULAIR [Concomitant]
     Active Substance: MONTELUKAST SODIUM
  17. RESTASIS [Concomitant]
     Active Substance: CYCLOSPORINE
  18. LIPITOR [Concomitant]
     Active Substance: ATORVASTATIN CALCIUM
  19. GABAPENTIN [Concomitant]
     Active Substance: GABAPENTIN
  20. LEXAPRO [Concomitant]
     Active Substance: ESCITALOPRAM OXALATE
  21. RANITIDINE [Concomitant]
     Active Substance: RANITIDINE
  22. EPIPEN [Concomitant]
     Active Substance: EPINEPHRINE
  23. IPRATROPIUM BROMIDE [Concomitant]
     Active Substance: IPRATROPIUM BROMIDE
  24. TOPROL XL [Concomitant]
     Active Substance: METOPROLOL SUCCINATE
  25. TACROLIMUS [Concomitant]
     Active Substance: TACROLIMUS
  26. ATROVENT [Concomitant]
     Active Substance: IPRATROPIUM BROMIDE
  27. ENTRESTO [Concomitant]
     Active Substance: SACUBITRIL\VALSARTAN
  28. ELIQUIS [Concomitant]
     Active Substance: APIXABAN

REACTIONS (16)
  - Loss of consciousness [Unknown]
  - Heart rate irregular [Unknown]
  - Fall [Unknown]
  - Peripheral swelling [Unknown]
  - Flushing [Unknown]
  - Infusion site reaction [Unknown]
  - Infusion site haemorrhage [Unknown]
  - Muscle spasms [Unknown]
  - Infusion site oedema [Unknown]
  - Infusion site extravasation [Unknown]
  - Infusion site erythema [Unknown]
  - Infusion site swelling [Unknown]
  - Infusion site pain [Recovered/Resolved]
  - Dizziness [Unknown]
  - Fatigue [Unknown]
  - Incorrect drug administration rate [Unknown]
